FAERS Safety Report 5491270-X (Version None)
Quarter: 2007Q4

REPORT INFORMATION
  Report Type: 
  Country: None (occurrence: None)
  Receive Date: 20071017
  Receipt Date: 20071009
  Transmission Date: 20080405
  Serious: Yes (Hospitalization)
  Sender: FDA-Public Use
  Company Number: S06-FRA-01359-01

PATIENT
  Age: 59 Year
  Sex: Male

DRUGS (2)
  1. EBIXA                                                (MEMANTINE) [Suspect]
     Dosage: 10 MG BID PO
     Route: 048
     Dates: start: 20051015
  2. REMINYL                                          (GALANTAMINE HYDROBRO [Suspect]
     Dosage: 12 MG BID PO
     Route: 048
     Dates: start: 20050115

REACTIONS (3)
  - COLITIS ULCERATIVE [None]
  - DIVERTICULUM INTESTINAL [None]
  - DRUG EFFECT DECREASED [None]
